APPROVED DRUG PRODUCT: ZOLEDRONIC ACID
Active Ingredient: ZOLEDRONIC ACID
Strength: EQ 5MG BASE/100ML
Dosage Form/Route: INJECTABLE;INTRAVENOUS
Application: A209578 | Product #001 | TE Code: AP
Applicant: GLAND PHARMA LTD
Approved: Aug 8, 2019 | RLD: No | RS: No | Type: RX